FAERS Safety Report 6008789-5 (Version None)
Quarter: 2008Q4

REPORT INFORMATION
  Report Type: 
  Country: None (occurrence: None)
  Receive Date: 20081217
  Receipt Date: 20060504
  Transmission Date: 20090506
  Serious: Yes (Hospitalization)
  Sender: FDA-Public Use
  Company Number: US-BAXTER-2008BH010358

PATIENT

DRUGS (1)
  1. GAMMAGARD S/D [Suspect]
     Indication: HYPER IGM SYNDROME
     Route: 042

REACTIONS (2)
  - BRONCHIOLITIS [None]
  - PERTUSSIS [None]
